FAERS Safety Report 4607118-9 (Version None)
Quarter: 2005Q1

REPORT INFORMATION
  Report Type: 
  Country: None (occurrence: None)
  Receive Date: 20050309
  Receipt Date: 20050218
  Transmission Date: 20050727
  Serious: Yes (Hospitalization)
  Sender: FDA-Public Use
  Company Number: USA050291209

PATIENT
  Age: 54 Year
  Sex: Male

DRUGS (5)
  1. HUMALOG [Suspect]
     Indication: DIABETES MELLITUS
     Dosage: 16 U/3 DAY
     Dates: start: 19980101
  2. HUMULIN N [Suspect]
     Indication: DIABETES MELLITUS
     Dates: start: 19880101, end: 19980101
  3. HUMULIN R [Suspect]
     Indication: DIABETES MELLITUS
     Dates: start: 19880101, end: 19980101
  4. INSULIN [Suspect]
     Indication: DIABETES MELLITUS
     Dates: start: 19590301
  5. LANTUS [Concomitant]

REACTIONS (8)
  - BLOOD GLUCOSE INCREASED [None]
  - CORONARY ARTERY SURGERY [None]
  - EYE DISORDER [None]
  - HYPERHIDROSIS [None]
  - PHARMACEUTICAL PRODUCT COMPLAINT [None]
  - POLLAKIURIA [None]
  - READING DISORDER [None]
  - TREMOR [None]
